FAERS Safety Report 17140995 (Version 5)
Quarter: 2020Q4

REPORT INFORMATION
  Report Type: Spontaneous
  Country: US (occurrence: US)
  Receive Date: 20191211
  Receipt Date: 20201215
  Transmission Date: 20210113
  Serious: Yes (Other)
  Sender: FDA-Public Use
  Company Number: US-PFIZER INC-2019534869

PATIENT
  Age: 68 Year
  Sex: Male
  Weight: 54.42 kg

DRUGS (7)
  1. LYRICA [Suspect]
     Active Substance: PREGABALIN
     Indication: ARTHRALGIA
     Dosage: 2 DF, DAILY (2 PILLS A DAY)
  2. ASPIRIN [ACETYLSALICYLIC ACID] [Concomitant]
     Active Substance: ASPIRIN
     Indication: CEREBROVASCULAR ACCIDENT
     Dosage: UNK
  3. PROTONIX [OMEPRAZOLE] [Concomitant]
     Active Substance: OMEPRAZOLE
     Dosage: UNK
  4. LYRICA [Suspect]
     Active Substance: PREGABALIN
     Dosage: 300 MG, DAILY (TAKING 50 MG TWO EACH TIME, THREE TIMES A DAY)
  5. TRAMADOL. [Concomitant]
     Active Substance: TRAMADOL
     Dosage: UNK
  6. CALCIUM [Concomitant]
     Active Substance: CALCIUM
     Dosage: UNK, DAILY
  7. LYRICA [Suspect]
     Active Substance: PREGABALIN
     Indication: PAIN IN EXTREMITY
     Dosage: 3 DF, DAILY (3 PILLS A DAY)

REACTIONS (8)
  - Hypoacusis [Unknown]
  - Upper limb fracture [Unknown]
  - Gait inability [Unknown]
  - Weight increased [Unknown]
  - Fall [Unknown]
  - Off label use [Unknown]
  - Intentional product use issue [Unknown]
  - Mobility decreased [Unknown]
